FAERS Safety Report 5363717-0 (Version None)
Quarter: 2007Q2

REPORT INFORMATION
  Report Type: 
  Country: None (occurrence: None)
  Receive Date: 20070620
  Receipt Date: 20070618
  Transmission Date: 20071010
  Serious: Yes (Death, Hospitalization)
  Sender: FDA-Public Use
  Company Number: PHNU2007DE01435

PATIENT
  Sex: Female

DRUGS (8)
  1. ZOMETA [Suspect]
     Indication: METASTASES TO BONE
     Dosage: 4 MG, QMO
     Route: 042
     Dates: start: 20050801
  2. METOPROLOL SUCCINATE [Concomitant]
     Dosage: 25 MG/DAY
     Route: 048
  3. CALCIUM CHLORIDE [Concomitant]
     Dosage: 500 MG/DAY
     Route: 065
  4. VIGANTOLETTEN ^MERCK^ [Concomitant]
     Dosage: 500 IU, QD
     Route: 048
  5. PARACETAMOL [Concomitant]
     Dosage: 500 MG, PRN
     Route: 065
  6. BUSCOPAN [Concomitant]
     Dosage: 10 MG, PRN
     Route: 065
  7. POSTERISAN CORTE [Concomitant]
     Route: 065
  8. ARIMIDEX [Concomitant]
     Indication: BREAST CANCER METASTATIC
     Dosage: 1 MG, QD
     Route: 048
     Dates: start: 20051101

REACTIONS (7)
  - ABDOMINAL PAIN LOWER [None]
  - CACHEXIA [None]
  - COLON CANCER [None]
  - COLONOSCOPY ABNORMAL [None]
  - CREATININE RENAL CLEARANCE DECREASED [None]
  - HAEMATOCHEZIA [None]
  - MALIGNANT NEOPLASM PROGRESSION [None]
